FAERS Safety Report 8543216-5 (Version None)
Quarter: 2012Q3

REPORT INFORMATION
  Report Type: 
  Country: None (occurrence: None)
  Receive Date: 20120716
  Receipt Date: 20120711
  Transmission Date: 20120928
  Serious: Yes (Other)
  Sender: FDA-Public Use
  Company Number: ADR-2011-11699

PATIENT
  Sex: Female

DRUGS (2)
  1. LIORESAL [Suspect]
     Indication: MUSCLE SPASTICITY
     Dosage: SEE B5
  2. LIORESAL [Suspect]
     Indication: CEREBRAL PALSY
     Dosage: SEE B5

REACTIONS (23)
  - ABNORMAL BEHAVIOUR [None]
  - GASTRIC VOLVULUS [None]
  - HYPERTONIA [None]
  - NERVOUS SYSTEM DISORDER [None]
  - PERITONITIS [None]
  - DEVICE DISLOCATION [None]
  - MUSCLE TIGHTNESS [None]
  - CONVULSION [None]
  - MASS [None]
  - DRUG TOLERANCE [None]
  - PERITONEAL NECROSIS [None]
  - POSTOPERATIVE ADHESION [None]
  - MUSCLE SPASTICITY [None]
  - INFECTION [None]
  - GASTRIC DISORDER [None]
  - POSTURE ABNORMAL [None]
  - DEVICE OCCLUSION [None]
  - DRUG WITHDRAWAL SYNDROME [None]
  - HEADACHE [None]
  - DYSARTHRIA [None]
  - DEVICE BREAKAGE [None]
  - PARAESTHESIA [None]
  - FEELING ABNORMAL [None]
